FAERS Safety Report 20419580 (Version 1)
Quarter: 2022Q1

REPORT INFORMATION
  Report Type: Spontaneous
  Country: US (occurrence: US)
  Receive Date: 20220203
  Receipt Date: 20220203
  Transmission Date: 20220423
  Serious: Yes (Hospitalization, Other)
  Sender: FDA-Public Use
  Company Number: US-SUN PHARMACEUTICAL INDUSTRIES LTD-2022R1-325111

PATIENT
  Age: 23 Year
  Sex: Male

DRUGS (5)
  1. LORAZEPAM [Suspect]
     Active Substance: LORAZEPAM
     Indication: Agitation
     Dosage: UNK (2 MG)
     Route: 065
  2. LORAZEPAM [Suspect]
     Active Substance: LORAZEPAM
     Dosage: UNK (2 MG 6 TIMES A DAY)
     Route: 065
  3. HALOPERIDOL [Suspect]
     Active Substance: HALOPERIDOL
     Indication: Agitation
     Dosage: UNK (5 MG)
     Route: 030
  4. RISPERIDONE [Concomitant]
     Active Substance: RISPERIDONE
     Indication: Shared psychotic disorder
     Dosage: 0.5 MILLIGRAM, BID
     Route: 065
  5. RISPERIDONE [Concomitant]
     Active Substance: RISPERIDONE
     Indication: Delirium
     Dosage: 2 MILLIGRAM, BID
     Route: 065

REACTIONS (2)
  - Condition aggravated [Unknown]
  - Electrocardiogram QT prolonged [Recovered/Resolved]
